FAERS Safety Report 24855993 (Version 1)
Quarter: 2025Q1

REPORT INFORMATION
  Report Type: Report from Study
  Country: US (occurrence: US)
  Receive Date: 20250117
  Receipt Date: 20250117
  Transmission Date: 20250408
  Serious: Yes (Death, Life-Threatening, Hospitalization, Other)
  Sender: BAYER HEALTHCARE PHARMACEUTICALS INC.
  Company Number: US-BAYER-2025A006269

PATIENT
  Age: 62 Year
  Sex: Female

DRUGS (8)
  1. BETASERON [Suspect]
     Active Substance: INTERFERON BETA-1B
  2. AMBIEN [Interacting]
     Active Substance: ZOLPIDEM TARTRATE
  3. FIORINAL WITH CODEINE [Interacting]
     Active Substance: ASPIRIN\BUTALBITAL\CAFFEINE\CODEINE PHOSPHATE
  4. LITHIUM CARBONATE [Interacting]
     Active Substance: LITHIUM CARBONATE
  5. CANNABIS SATIVA SUBSP. INDICA TOP [Interacting]
     Active Substance: CANNABIS SATIVA SUBSP. INDICA TOP
  6. PROTONIX [Interacting]
     Active Substance: PANTOPRAZOLE SODIUM
  7. PROZAC [Interacting]
     Active Substance: FLUOXETINE HYDROCHLORIDE
  8. XANAX [Interacting]
     Active Substance: ALPRAZOLAM

REACTIONS (15)
  - Asthenia [Fatal]
  - Blood pressure decreased [Fatal]
  - Dehydration [Fatal]
  - Depressed level of consciousness [Fatal]
  - Drug interaction [Fatal]
  - Eye pain [Fatal]
  - Loss of consciousness [Fatal]
  - Mobility decreased [Fatal]
  - Multiple sclerosis [Fatal]
  - Hypophagia [Fatal]
  - Pain [Fatal]
  - Pneumonia [Fatal]
  - Toxicity to various agents [Fatal]
  - Tremor [Fatal]
  - Vomiting [Fatal]
